FAERS Safety Report 8914109 (Version 1)
Quarter: 2012Q4

REPORT INFORMATION
  Report Type: Spontaneous
  Country: US (occurrence: None)
  Receive Date: 20121114
  Receipt Date: 20121114
  Transmission Date: 20130627
  Serious: Yes (Other)
  Sender: FDA-Public Use
  Company Number: DSA_58857_2012

PATIENT
  Age: 51 Year
  Sex: Female

DRUGS (2)
  1. XENAZINE 12.5 MG (NOT SPECIFIED) [Suspect]
     Indication: HUNTINGTON^S DISEASE
     Route: 048
     Dates: start: 20120629, end: 20120803
  2. XENAZINE 12.5 MG (NOT SPECIFIED) [Suspect]
     Indication: HUNTINGTON^S DISEASE
     Route: 048
     Dates: start: 20120807

REACTIONS (4)
  - Movement disorder [None]
  - Condition aggravated [None]
  - Huntington^s disease [None]
  - Insomnia [None]
